FAERS Safety Report 5046499-1 (Version None)
Quarter: 2006Q2

REPORT INFORMATION
  Report Type: 
  Country: None (occurrence: None)
  Receive Date: 20060629
  Receipt Date: 20060619
  Transmission Date: 20061013
  Serious: Yes (Other)
  Sender: FDA-Public Use
  Company Number: 2006078140

PATIENT
  Age: 63 Year
  Sex: Female
  Weight: 58.9676 kg

DRUGS (3)
  1. XALATAN [Suspect]
     Indication: GLAUCOMA
     Dosage: 2 DROP (1 DROP, 1 IN 1 D), INTRAOCULAR
     Route: 031
  2. LITHIUM (LITHIUM) [Concomitant]
  3. KLONOPIN [Concomitant]

REACTIONS (1)
  - TENDON RUPTURE [None]
